FAERS Safety Report 18806952 (Version 1)
Quarter: 2021Q1

REPORT INFORMATION
  Report Type: Spontaneous
  Country: US (occurrence: US)
  Receive Date: 20210128
  Receipt Date: 20210128
  Transmission Date: 20210419
  Serious: Yes (Death)
  Sender: FDA-Public Use
  Company Number: None

PATIENT
  Age: 41 Year
  Sex: Male

DRUGS (6)
  1. TACROLIMUS. [Suspect]
     Active Substance: TACROLIMUS
     Indication: RENAL TRANSPLANT
     Route: 048
  2. PREDNISONE 5 MG [Concomitant]
     Active Substance: PREDNISONE
  3. LINZESS 145 MCG [Concomitant]
  4. ASPIRIN 81 MG [Concomitant]
     Active Substance: ASPIRIN
  5. AMLODIPINE 2.5 MG [Concomitant]
     Active Substance: AMLODIPINE BESYLATE
  6. MYCOPHENOLIC [Suspect]
     Active Substance: MYCOPHENOLIC ACID
     Indication: RENAL TRANSPLANT
     Route: 048

REACTIONS (1)
  - Death [None]

NARRATIVE: CASE EVENT DATE: 20210101
